FAERS Safety Report 21950210 (Version 1)
Quarter: 2023Q1

REPORT INFORMATION
  Report Type: Spontaneous
  Country: US (occurrence: None)
  Receive Date: 20230202
  Receipt Date: 20230202
  Transmission Date: 20230418
  Serious: Yes (unspecified)
  Sender: FDA-Public Use
  Company Number: None

PATIENT
  Age: 19 Year
  Sex: Female
  Weight: 130.6 kg

DRUGS (1)
  1. TYSABRI [Suspect]
     Active Substance: NATALIZUMAB
     Dosage: OTHER FREQUENCY : EVERY MONTH;?
     Route: 041
     Dates: start: 20230202, end: 20230202

REACTIONS (4)
  - Dyspnoea [None]
  - Flushing [None]
  - Vomiting [None]
  - Infusion related reaction [None]

NARRATIVE: CASE EVENT DATE: 20230202
